FAERS Safety Report 6439413-5 (Version None)
Quarter: 2009Q4

REPORT INFORMATION
  Report Type: 
  Country: None (occurrence: None)
  Receive Date: 20091113
  Receipt Date: 20091109
  Transmission Date: 20100525
  Serious: Yes (Death, Life-Threatening)
  Sender: FDA-Public Use
  Company Number: JP-JNJFOC-20091103401

PATIENT
  Sex: Female
  Weight: 45 kg

DRUGS (2)
  1. DOXORUBICIN HCL [Suspect]
     Indication: OVARIAN CANCER RECURRENT
     Route: 042
     Dates: start: 20090710, end: 20090710
  2. MYSLEE [Concomitant]
     Route: 048

REACTIONS (7)
  - BONE MARROW FAILURE [None]
  - DISSEMINATED INTRAVASCULAR COAGULATION [None]
  - INFECTION [None]
  - MALIGNANT NEOPLASM PROGRESSION [None]
  - OVARIAN CANCER [None]
  - PLATELET COUNT DECREASED [None]
  - WHITE BLOOD CELL COUNT DECREASED [None]
